FAERS Safety Report 18459141 (Version 1)
Quarter: 2020Q4

REPORT INFORMATION
  Report Type: Spontaneous
  Country: US (occurrence: US)
  Receive Date: 20201103
  Receipt Date: 20201103
  Transmission Date: 20210114
  Serious: No
  Sender: FDA-Public Use
  Company Number: US-BIODELIVERY SCIENCES INTERNATIONAL-2020BDSI0604

PATIENT
  Sex: Female

DRUGS (4)
  1. BUPRENORPHINE. [Suspect]
     Active Substance: BUPRENORPHINE
     Route: 002
     Dates: start: 202008, end: 202009
  2. BUPRENORPHINE. [Suspect]
     Active Substance: BUPRENORPHINE
     Indication: PAIN
     Route: 002
     Dates: start: 202007, end: 202008
  3. BUPRENORPHINE. [Suspect]
     Active Substance: BUPRENORPHINE
     Route: 002
     Dates: start: 202009
  4. FENTANYL. [Concomitant]
     Active Substance: FENTANYL
     Indication: PAIN
     Dosage: UNKNOWN, UNKNOWN
     Route: 065

REACTIONS (2)
  - Wrong technique in product usage process [Recovered/Resolved]
  - Product solubility abnormal [Unknown]

NARRATIVE: CASE EVENT DATE: 2020
